FAERS Safety Report 10717237 (Version 1)
Quarter: 2015Q1

REPORT INFORMATION
  Report Type: Spontaneous
  Country: US (occurrence: US)
  Receive Date: 20150116
  Receipt Date: 20150116
  Transmission Date: 20150721
  Serious: Yes (Death, Hospitalization)
  Sender: FDA-Public Use
  Company Number: US-BAYER-2015-004689

PATIENT
  Age: 43 Year
  Sex: Female

DRUGS (3)
  1. ERGOCALCIFEROL. [Concomitant]
     Active Substance: ERGOCALCIFEROL
  2. LORATADINE. [Concomitant]
     Active Substance: LORATADINE
  3. DIPHENHYDRAMINE HYDROCHLORIDE. [Suspect]
     Active Substance: DIPHENHYDRAMINE HYDROCHLORIDE
     Dosage: 8125 MG (325 X 25 MG)

REACTIONS (12)
  - Brain oedema [Fatal]
  - Epistaxis [Fatal]
  - Blood pressure decreased [Fatal]
  - Cardiac arrest [Fatal]
  - Pulse absent [Fatal]
  - Pancreatitis [Fatal]
  - Disseminated intravascular coagulation [Fatal]
  - Atelectasis [Fatal]
  - Toxicity to various agents [Fatal]
  - Bronchopneumonia [Fatal]
  - Spleen disorder [Fatal]
  - Intentional overdose [Fatal]
